FAERS Safety Report 12683522 (Version 2)
Quarter: 2016Q3

REPORT INFORMATION
  Report Type: Spontaneous
  Country: US (occurrence: US)
  Receive Date: 20160825
  Receipt Date: 20160930
  Transmission Date: 20161109
  Serious: No
  Sender: FDA-Public Use
  Company Number: US-PFIZER INC-2016402587

PATIENT
  Age: 69 Year
  Sex: Female

DRUGS (1)
  1. CELECOXIB. [Suspect]
     Active Substance: CELECOXIB
     Indication: NERVE INJURY
     Dosage: 200 MG, DAILY
     Dates: start: 2013

REACTIONS (3)
  - Blood disorder [Not Recovered/Not Resolved]
  - International normalised ratio abnormal [Unknown]
  - Product use issue [Unknown]
